FAERS Safety Report 10110519 (Version 1)
Quarter: 2014Q2

REPORT INFORMATION
  Report Type: Spontaneous
  Country: GB (occurrence: None)
  Receive Date: 20140423
  Receipt Date: 20140423
  Transmission Date: 20141212
  Serious: Yes (Hospitalization)
  Sender: FDA-Public Use
  Company Number: AUR-APL-2014-04575

PATIENT
  Age: 37 Year
  Sex: Female

DRUGS (2)
  1. FLUOXETINE [Suspect]
     Indication: PREMENSTRUAL SYNDROME
     Dosage: 20 MG ( 20 MG, 1 IN 1 D), ORAL
     Route: 048
     Dates: start: 201402
  2. DICLOFENAC [Suspect]
     Indication: PAIN
     Dosage: 2 DOSAGE FORMS ( 1 DOSAGE FORMS, 2 IN 1 D), ORAL
     Route: 048

REACTIONS (2)
  - Gastric ulcer perforation [None]
  - Drug interaction [None]
